FAERS Safety Report 6336153-8 (Version None)
Quarter: 2009Q3

REPORT INFORMATION
  Report Type: 
  Country: None (occurrence: None)
  Receive Date: 20090828
  Receipt Date: 20090818
  Transmission Date: 20100115
  Serious: Yes (Disabling)
  Sender: FDA-Public Use
  Company Number: ADR14002009

PATIENT
  Age: 64 Year
  Sex: Male

DRUGS (8)
  1. CITALOPRAM HYDROBROMIDE [Suspect]
     Indication: DEPRESSION
     Dosage: 20MG ORAL
     Route: 048
  2. ASPIRIN [Concomitant]
  3. BENDROFLUMETHIAZIDE [Concomitant]
  4. CO-DYDRAMOL [Concomitant]
  5. HYDROXOCOBALAMIN [Concomitant]
  6. RAMIPRIL [Concomitant]
  7. TIBOLONE [Concomitant]
  8. VERAPAMIL [Concomitant]

REACTIONS (3)
  - GAIT DISTURBANCE [None]
  - MUSCULAR WEAKNESS [None]
  - PAIN [None]
